FAERS Safety Report 21418067 (Version 1)
Quarter: 2022Q4

REPORT INFORMATION
  Report Type: Spontaneous
  Country: US (occurrence: None)
  Receive Date: 20221005
  Receipt Date: 20221005
  Transmission Date: 20230113
  Serious: No
  Sender: FDA-Public Use
  Company Number: None

PATIENT
  Age: 59 Year
  Sex: Female

DRUGS (1)
  1. ADEMPAS [Suspect]
     Active Substance: RIOCIGUAT
     Indication: Pulmonary hypertension
     Dosage: FREQUENCY : TWICE A DAY;?
     Route: 048
     Dates: start: 20220525, end: 20221005

REACTIONS (11)
  - Fatigue [None]
  - Gastrooesophageal reflux disease [None]
  - Nausea [None]
  - Initial insomnia [None]
  - Dyspepsia [None]
  - Head discomfort [None]
  - Dizziness postural [None]
  - Dizziness exertional [None]
  - Headache [None]
  - Drug intolerance [None]
  - Hypotension [None]

NARRATIVE: CASE EVENT DATE: 20221005
